FAERS Safety Report 14299643 (Version 3)
Quarter: 2018Q1

REPORT INFORMATION
  Report Type: Report from Study
  Country: IT (occurrence: IT)
  Receive Date: 20171219
  Receipt Date: 20180108
  Transmission Date: 20180509
  Serious: Yes (Hospitalization)
  Sender: FDA-Public Use
  Company Number: IT-ROCHE-2036963

PATIENT
  Age: 72 Year
  Sex: Female

DRUGS (4)
  1. TRASTUZUMAB. [Suspect]
     Active Substance: TRASTUZUMAB
     Indication: HER-2 POSITIVE GASTRIC CANCER
     Dosage: DATE OF MOST RECENT DOSE OF  TRASTUZUMAB 396 MG PRIOR TO SERIOUS ADVERSE EVENT (SAE): 01/SEP/2017.
     Route: 042
     Dates: start: 20170717
  2. HYDROCHLOROTHIAZIDE/NEBIVOLOL [Suspect]
     Active Substance: HYDROCHLOROTHIAZIDE\NEBIVOLOL HYDROCHLORIDE
     Indication: HYPERTENSION
     Dosage: 5/25 MG.
     Route: 048
     Dates: start: 20150615
  3. CISPLATIN. [Suspect]
     Active Substance: CISPLATIN
     Indication: HER-2 POSITIVE GASTRIC CANCER
     Dosage: DATE OF MOST RECENT DOSE OF CISPLATIN 71 MG PRIOR TO SERIOUS ADVERSE EVENT (SAE): 01/SEP/2017.
     Route: 042
     Dates: start: 20170717, end: 20170901
  4. CAPECITABINE. [Suspect]
     Active Substance: CAPECITABINE
     Indication: HER-2 POSITIVE GASTRIC CANCER
     Dosage: DATE OF MOST RECENT DOSE OF CAPECITABINE 3500 MG PRIOR TO SERIOUS ADVERSE EVENT (SAE): 07/SEP/2017.
     Route: 048
     Dates: start: 20170717, end: 20170908

REACTIONS (2)
  - Hyponatraemia [Recovered/Resolved]
  - Cystitis haemorrhagic [Recovered/Resolved]

NARRATIVE: CASE EVENT DATE: 20170908
